FAERS Safety Report 4341972-3 (Version None)
Quarter: 2004Q2

REPORT INFORMATION
  Report Type: 
  Country: None (occurrence: None)
  Receive Date: 20040415
  Receipt Date: 20040330
  Transmission Date: 20050107
  Serious: Yes (Hospitalization, Other)
  Sender: FDA-Public Use
  Company Number: US_040199891

PATIENT
  Age: 53 Year
  Sex: Female
  Weight: 89 kg

DRUGS (4)
  1. HUMATROPE [Suspect]
     Indication: HYPOPITUITARISM
     Dosage: 0.4 MG/DAY
     Dates: start: 19960101, end: 20040102
  2. HYDROCORTISONE [Concomitant]
  3. VIVELLE [Concomitant]
  4. L-THYROXINE [Concomitant]

REACTIONS (5)
  - BIOPSY BRAIN ABNORMAL [None]
  - GLIOBLASTOMA MULTIFORME [None]
  - OEDEMA [None]
  - PERSONALITY CHANGE [None]
  - SOMNOLENCE [None]
